FAERS Safety Report 7850654-2 (Version None)
Quarter: 2011Q4

REPORT INFORMATION
  Report Type: 
  Country: None (occurrence: None)
  Receive Date: 20111024
  Receipt Date: 20111012
  Transmission Date: 20120403
  Serious: Yes (Death)
  Sender: FDA-Public Use
  Company Number: LEO-2011-00837

PATIENT

DRUGS (3)
  1. WARFARIN SODIUM [Suspect]
     Dosage: ,ORAL
     Route: 048
  2. INNOHEP [Suspect]
  3. XARELTO [Suspect]
     Dosage: ,ORAL
     Route: 048

REACTIONS (2)
  - RETROPERITONEAL HAEMORRHAGE [None]
  - DRUG INTERACTION [None]
